FAERS Safety Report 23293159 (Version 2)
Quarter: 2024Q1

REPORT INFORMATION
  Report Type: Spontaneous
  Country: CA (occurrence: CA)
  Receive Date: 20231213
  Receipt Date: 20240201
  Transmission Date: 20240410
  Serious: Yes (Death)
  Sender: FDA-Public Use
  Company Number: CA-PFIZER INC-PV202300199065

PATIENT
  Age: 62 Year
  Sex: Female

DRUGS (1)
  1. ZIRABEV [Suspect]
     Active Substance: BEVACIZUMAB-BVZR
     Dosage: UNK
     Dates: start: 20230830

REACTIONS (1)
  - Death [Fatal]

NARRATIVE: CASE EVENT DATE: 20231206
